FAERS Safety Report 21213204 (Version 1)
Quarter: 2022Q3

REPORT INFORMATION
  Report Type: Report from Study
  Country: IT (occurrence: IT)
  Receive Date: 20220815
  Receipt Date: 20220815
  Transmission Date: 20221027
  Serious: Yes (Life-Threatening, Hospitalization, Other)
  Sender: FDA-Public Use
  Company Number: IT-CC-90011-ST-002-3041002-20211007-0001SG

PATIENT
  Age: 67 Year
  Sex: Male
  Weight: 76 kg

DRUGS (6)
  1. NIVOLUMAB [Suspect]
     Active Substance: NIVOLUMAB
     Indication: Squamous cell carcinoma of lung
     Route: 042
     Dates: start: 20210929, end: 20210929
  2. ATORVASTATIN [Concomitant]
     Active Substance: ATORVASTATIN
     Indication: Hypercholesterolaemia
     Dosage: 20 MG X 1 X 1 DAYS
     Route: 048
  3. ASPIRIN [Concomitant]
     Active Substance: ASPIRIN
     Indication: Hypertension
     Dosage: 100 MG X 1 X 1 DAYS
     Route: 048
  4. LANSOPRAZOLE [Concomitant]
     Active Substance: LANSOPRAZOLE
     Indication: Prophylaxis
     Dosage: 30 MG X 1 X 1 DAYS
     Route: 048
  5. PARACODIN [Concomitant]
     Indication: Prophylaxis
     Dosage: FREQUENCY TEXT: UNKNOWN?20 X UNKNOWN
     Route: 060
  6. SODIUM CHLORIDE [Concomitant]
     Active Substance: SODIUM CHLORIDE
     Indication: Alveolar proteinosis
     Route: 065
     Dates: start: 20211007, end: 20211007

REACTIONS (1)
  - Pneumonitis [Recovered/Resolved]

NARRATIVE: CASE EVENT DATE: 20211007
